FAERS Safety Report 18427847 (Version 8)
Quarter: 2021Q1

REPORT INFORMATION
  Report Type: Report from Study
  Country: JP (occurrence: JP)
  Receive Date: 20201026
  Receipt Date: 20210211
  Transmission Date: 20210419
  Serious: Yes (Hospitalization)
  Sender: FDA-Public Use
  Company Number: JP-EISAI MEDICAL RESEARCH-EC-2020-082634

PATIENT
  Age: 73 Year
  Sex: Male
  Weight: 61.8 kg

DRUGS (20)
  1. LENVATINIB [Suspect]
     Active Substance: LENVATINIB
     Route: 048
     Dates: start: 20201125
  2. AZUNOL [Concomitant]
     Route: 061
     Dates: start: 20200624
  3. LANSOPRAZOLE. [Concomitant]
     Active Substance: LANSOPRAZOLE
     Dates: start: 20201008
  4. AMLODIPINE [Concomitant]
     Active Substance: AMLODIPINE BESYLATE
     Dates: start: 201701, end: 20201015
  5. HIRUDOID SOFT [Concomitant]
     Active Substance: GLYCOSAMINOGLYCANS
     Dates: start: 20200518
  6. EPISIL [Concomitant]
     Dates: start: 20200805, end: 20201008
  7. PEMBROLIZUMAB. [Suspect]
     Active Substance: PEMBROLIZUMAB
     Indication: TRANSITIONAL CELL CARCINOMA
     Route: 041
     Dates: start: 20200520, end: 20200812
  8. PEMBROLIZUMAB. [Suspect]
     Active Substance: PEMBROLIZUMAB
     Route: 041
     Dates: start: 20200902, end: 20200902
  9. LULICON [Concomitant]
     Active Substance: LULICONAZOLE
     Dates: start: 20200520, end: 20201008
  10. SENNOSIDES. [Concomitant]
     Active Substance: SENNOSIDES
     Dates: start: 20200902
  11. PREDNISOLONE. [Concomitant]
     Active Substance: PREDNISOLONE
     Dates: start: 20201008, end: 20201014
  12. VESICARE [Concomitant]
     Active Substance: SOLIFENACIN SUCCINATE
     Dates: start: 20200519
  13. DAIPHEN [Concomitant]
     Active Substance: SULFAMETHOXAZOLE\TRIMETHOPRIM
     Dates: start: 20201008, end: 20201110
  14. AZILVA [Concomitant]
     Active Substance: AZILSARTAN KAMEDOXOMIL
     Dates: start: 20200523
  15. BETAMETHASONE BUTYRATE PROPIONATE [Concomitant]
     Active Substance: BETAMETHASONE BUTYRATE PROPIONATE
     Dates: start: 20200603
  16. STIBRON [Concomitant]
     Dates: start: 20200812
  17. GLYCERIN. [Concomitant]
     Active Substance: GLYCERIN
     Route: 061
     Dates: start: 20200722
  18. LENVATINIB [Suspect]
     Active Substance: LENVATINIB
     Indication: TRANSITIONAL CELL CARCINOMA
     Route: 048
     Dates: start: 20200520, end: 20200922
  19. PEMBROLIZUMAB. [Suspect]
     Active Substance: PEMBROLIZUMAB
     Route: 041
     Dates: start: 20210107
  20. MAGNESIUM OXIDE. [Concomitant]
     Active Substance: MAGNESIUM OXIDE
     Dates: start: 20200902

REACTIONS (1)
  - Prinzmetal angina [Recovered/Resolved with Sequelae]

NARRATIVE: CASE EVENT DATE: 20201014
